FAERS Safety Report 4965195-X (Version None)
Quarter: 2006Q1

REPORT INFORMATION
  Report Type: 
  Country: None (occurrence: None)
  Receive Date: 20060207
  Receipt Date: 20050802
  Transmission Date: 20060701
  Serious: Yes (Life-Threatening)
  Sender: FDA-Public Use
  Company Number: 243761

PATIENT
  Age: 43 Year
  Sex: Female

DRUGS (2)
  1. NOVOLOG(INSULIN ASPART) SOLUTION FOR INJECTIION, 100U/ML [Suspect]
     Indication: DIABETES MELLITUS INSULIN-DEPENDENT
     Dosage: SLIDING SCALE, SUBCUTANEOUS
     Route: 058
     Dates: start: 20030101
  2. LANTUS [Concomitant]

REACTIONS (2)
  - HYPOGLYCAEMIC COMA [None]
  - MEDICATION ERROR [None]
